FAERS Safety Report 6464951-9 (Version None)
Quarter: 2009Q4

REPORT INFORMATION
  Report Type: 
  Country: None (occurrence: None)
  Receive Date: 20091201
  Receipt Date: 20091127
  Transmission Date: 20100525
  Serious: Yes (Hospitalization)
  Sender: FDA-Public Use
  Company Number: SE-BRISTOL-MYERS SQUIBB COMPANY-14873152

PATIENT
  Age: 58 Year
  Sex: Male

DRUGS (2)
  1. ORENCIA [Suspect]
     Indication: PSORIATIC ARTHROPATHY
     Dosage: SOLUTION FOR INFUSION 250 MG AT A DOSE OF 680 MILLIGRAM
     Route: 042
     Dates: start: 20090502
  2. PREDNISOLONE [Suspect]
     Dosage: FORMULATION: TABLET

REACTIONS (3)
  - DEMENTIA [None]
  - DIZZINESS [None]
  - HEADACHE [None]
